FAERS Safety Report 13526246 (Version 1)
Quarter: 2017Q2

REPORT INFORMATION
  Report Type: Spontaneous
  Country: GB (occurrence: GB)
  Receive Date: 20170509
  Receipt Date: 20170509
  Transmission Date: 20170830
  Serious: Yes (Other)
  Sender: FDA-Public Use
  Company Number: GB-DRREDDYS-GER/UKI/17/0090507

PATIENT
  Age: 22 Year
  Sex: Female
  Weight: 67.12 kg

DRUGS (1)
  1. FEXOFENADINE [Suspect]
     Active Substance: FEXOFENADINE\FEXOFENADINE HYDROCHLORIDE
     Indication: ANAPHYLACTIC REACTION
     Route: 048
     Dates: start: 20170412, end: 20170419

REACTIONS (7)
  - Dizziness [Unknown]
  - Dysphonia [Unknown]
  - Throat tightness [Unknown]
  - Drug prescribing error [Unknown]
  - Throat irritation [Unknown]
  - Urticaria [Not Recovered/Not Resolved]
  - Hypersensitivity [Recovering/Resolving]

NARRATIVE: CASE EVENT DATE: 20170418
